FAERS Safety Report 15255358 (Version 1)
Quarter: 2018Q3

REPORT INFORMATION
  Report Type: Spontaneous
  Country: US (occurrence: US)
  Receive Date: 20180808
  Receipt Date: 20180808
  Transmission Date: 20181010
  Serious: No
  Sender: FDA-Public Use
  Company Number: US-LEXICON PHARMACEUTICALS, INC-18-1606-00930

PATIENT
  Age: 72 Year
  Sex: Female

DRUGS (13)
  1. TELOTRISTAT ETHYL [Suspect]
     Active Substance: TELOTRISTAT ETHYL
     Indication: CARCINOID TUMOUR OF THE DUODENUM
  2. BENZONATATE. [Concomitant]
     Active Substance: BENZONATATE
  3. SOMATULINE DEPOT [Concomitant]
     Active Substance: LANREOTIDE ACETATE
  4. POTASSIMIN [Concomitant]
  5. LASIX [Concomitant]
     Active Substance: FUROSEMIDE
  6. VALSARTAN. [Concomitant]
     Active Substance: VALSARTAN
  7. COQ10 [Concomitant]
     Active Substance: UBIDECARENONE
  8. CREON [Concomitant]
     Active Substance: PANCRELIPASE AMYLASE\PANCRELIPASE LIPASE\PANCRELIPASE PROTEASE
  9. TELOTRISTAT ETHYL [Suspect]
     Active Substance: TELOTRISTAT ETHYL
     Indication: CARCINOID SYNDROME
     Route: 048
     Dates: start: 20180430
  10. KEYTRUDA [Concomitant]
     Active Substance: PEMBROLIZUMAB
  11. ALIMTA [Concomitant]
     Active Substance: PEMETREXED DISODIUM
  12. CARBOPLATIN. [Concomitant]
     Active Substance: CARBOPLATIN
  13. HYOSYNE [Concomitant]
     Active Substance: HYOSCYAMINE SULFATE

REACTIONS (2)
  - Constipation [Unknown]
  - Chemotherapy [Unknown]

NARRATIVE: CASE EVENT DATE: 2018
